FAERS Safety Report 15867600 (Version 1)
Quarter: 2019Q1

REPORT INFORMATION
  Report Type: Report from Study
  Country: JP (occurrence: JP)
  Receive Date: 20190125
  Receipt Date: 20190125
  Transmission Date: 20190417
  Serious: Yes (Hospitalization)
  Sender: FDA-Public Use
  Company Number: JP-ACTELION-A-CH2019-185280

PATIENT
  Age: 39 Year
  Sex: Female

DRUGS (22)
  1. TULOBUTEROL [Concomitant]
     Active Substance: TULOBUTEROL
  2. RIVOTRIL [Concomitant]
     Active Substance: CLONAZEPAM
  3. CARBOCISTEINE [Concomitant]
     Active Substance: CARBOCYSTEINE
  4. NAUZELIN [Concomitant]
     Active Substance: DOMPERIDONE
  5. REVATIO [Concomitant]
     Active Substance: SILDENAFIL CITRATE
  6. BROTIZOLAM [Concomitant]
     Active Substance: BROTIZOLAM
  7. OXYGEN. [Concomitant]
     Active Substance: OXYGEN
  8. EPOPROSTENOL ACT [Suspect]
     Active Substance: EPOPROSTENOL
     Indication: PULMONARY ARTERIAL HYPERTENSION
     Route: 042
  9. TRAMCET [Concomitant]
     Active Substance: ACETAMINOPHEN\TRAMADOL
  10. EXCEGRAN [Concomitant]
     Active Substance: ZONISAMIDE
  11. CORTRIL [Concomitant]
     Active Substance: HYDROCORTISONE
  12. SEROQUEL [Concomitant]
     Active Substance: QUETIAPINE FUMARATE
  13. REBAMIPIDE [Concomitant]
     Active Substance: REBAMIPIDE
  14. MIYA-BM [Concomitant]
     Active Substance: CLOSTRIDIUM BUTYRICUM SPORES STRAIN M-55
  15. SILECE [Concomitant]
     Active Substance: FLUNITRAZEPAM
  16. OPSUMIT [Suspect]
     Active Substance: MACITENTAN
     Indication: PULMONARY ARTERIAL HYPERTENSION
     Dosage: 10 MG, QD
     Route: 048
     Dates: start: 20161207
  17. BISOLVON [Concomitant]
     Active Substance: BROMHEXINE HYDROCHLORIDE
  18. REMERON [Concomitant]
     Active Substance: MIRTAZAPINE
  19. ADEMPAS [Concomitant]
     Active Substance: RIOCIGUAT
  20. LAC-B [Concomitant]
     Active Substance: BIFIDOBACTERIUM SPP.
  21. ABILIFY [Concomitant]
     Active Substance: ARIPIPRAZOLE
  22. LOPEMIN [Concomitant]
     Active Substance: LOPERAMIDE HYDROCHLORIDE

REACTIONS (2)
  - Catheter management [Unknown]
  - Device related infection [Recovered/Resolved]

NARRATIVE: CASE EVENT DATE: 20180125
